FAERS Safety Report 5916633-7 (Version None)
Quarter: 2008Q4

REPORT INFORMATION
  Report Type: 
  Country: None (occurrence: None)
  Receive Date: 20081013
  Receipt Date: 20081006
  Transmission Date: 20090506
  Serious: Yes (Death, Hospitalization, Other)
  Sender: FDA-Public Use
  Company Number: US-CELGENEUS-013-20785-08060847

PATIENT
  Sex: Female

DRUGS (9)
  1. THALIDOMIDE [Suspect]
     Indication: MULTIPLE MYELOMA
     Route: 048
     Dates: start: 20080128, end: 20080502
  2. VELCADE [Suspect]
     Indication: DRUG USE FOR UNKNOWN INDICATION
     Route: 065
     Dates: start: 20080421, end: 20080502
  3. DEXAMETHASONE [Suspect]
     Indication: DRUG USE FOR UNKNOWN INDICATION
     Route: 065
     Dates: start: 20080421, end: 20080429
  4. BACTRIM [Concomitant]
     Indication: LUNG INFECTION
     Route: 051
     Dates: start: 20080611, end: 20080613
  5. ZOVIRAX [Concomitant]
     Indication: DRUG USE FOR UNKNOWN INDICATION
     Route: 065
  6. AUGMENTIN '125' [Concomitant]
     Indication: SINUSITIS
     Route: 048
     Dates: start: 20080507, end: 20080516
  7. LEVOTHYROXINE SODIUM [Concomitant]
     Indication: DRUG USE FOR UNKNOWN INDICATION
     Route: 065
  8. TAZOCIN [Concomitant]
     Indication: INFECTION
     Route: 051
     Dates: start: 20080525, end: 20080608
  9. CASPOFUNGIN [Concomitant]
     Indication: ANTIFUNGAL PROPHYLAXIS
     Route: 051
     Dates: start: 20080525, end: 20080614

REACTIONS (8)
  - HAEMORRHAGE [None]
  - LACTIC ACIDOSIS [None]
  - LEUKAEMIA [None]
  - MULTIPLE MYELOMA [None]
  - PANCYTOPENIA [None]
  - PULMONARY ALVEOLAR HAEMORRHAGE [None]
  - PYREXIA [None]
  - SINUSITIS [None]
